FAERS Safety Report 5603452-4 (Version None)
Quarter: 2008Q1

REPORT INFORMATION
  Report Type: 
  Country: None (occurrence: None)
  Receive Date: 20080123
  Receipt Date: 20080104
  Transmission Date: 20080703
  Serious: Yes (Hospitalization)
  Sender: FDA-Public Use
  Company Number: 8024998

PATIENT
  Age: 75 Year
  Sex: Female
  Weight: 60 kg

DRUGS (9)
  1. KEPPRA [Suspect]
     Indication: EPILEPSY
     Dosage: 250 MG 3/D PO
     Route: 048
     Dates: start: 20070417, end: 20070608
  2. DEPAKENE [Concomitant]
  3. LEVOTHYROX [Concomitant]
  4. LIPANTHYL [Concomitant]
  5. MOPRAL [Concomitant]
  6. UNALPHA [Concomitant]
  7. CELEBREX [Concomitant]
  8. DAFALGAN [Concomitant]
  9. VOGALENE [Concomitant]

REACTIONS (5)
  - EPILEPSY [None]
  - LIVER DISORDER [None]
  - MOVEMENT DISORDER [None]
  - PANCREATITIS ACUTE [None]
  - RENAL FAILURE [None]
